FAERS Safety Report 5234044-7 (Version None)
Quarter: 2007Q1

REPORT INFORMATION
  Report Type: 
  Country: None (occurrence: None)
  Receive Date: 20070208
  Receipt Date: 20070205
  Transmission Date: 20070707
  Serious: Yes (Hospitalization)
  Sender: FDA-Public Use
  Company Number: US-BOEHRINGER INGELHEIM PHARMACEUTICALS, INC.-2007-BP-01854BP

PATIENT
  Sex: Male

DRUGS (1)
  1. SPIRIVA [Suspect]
     Route: 055
     Dates: start: 20061101

REACTIONS (1)
  - PNEUMONIA [None]
